FAERS Safety Report 7794599-5 (Version None)
Quarter: 2011Q4

REPORT INFORMATION
  Report Type: 
  Country: None (occurrence: None)
  Receive Date: 20111004
  Receipt Date: 20110929
  Transmission Date: 20120403
  Serious: Yes (Hospitalization)
  Sender: FDA-Public Use
  Company Number: US-BAYER-2011-093466

PATIENT
  Age: 59 Year
  Sex: Male

DRUGS (1)
  1. NEXAVAR [Suspect]
     Indication: HEPATIC NEOPLASM MALIGNANT NON-RESECTABLE
     Dosage: 400 MG, BID
     Dates: start: 20110823

REACTIONS (9)
  - DEHYDRATION [None]
  - NAUSEA [None]
  - DYSPNOEA [None]
  - RENAL IMPAIRMENT [None]
  - FATIGUE [None]
  - ABDOMINAL PAIN [None]
  - FLUID RETENTION [None]
  - DIARRHOEA [None]
  - BLISTER [None]
